FAERS Safety Report 17417069 (Version 2)
Quarter: 2020Q1

REPORT INFORMATION
  Report Type: Report from Study
  Country: US (occurrence: US)
  Receive Date: 20200214
  Receipt Date: 20200311
  Transmission Date: 20200409
  Serious: Yes (Death)
  Sender: FDA-Public Use
  Company Number: US-ROCHE-2514652

PATIENT
  Age: 76 Year
  Sex: Male

DRUGS (4)
  1. COTELLIC [Suspect]
     Active Substance: COBIMETINIB
     Indication: METASTASES TO LIVER
  2. ZELBORAF [Suspect]
     Active Substance: VEMURAFENIB
     Indication: METASTASES TO LIVER
  3. ZELBORAF [Suspect]
     Active Substance: VEMURAFENIB
     Indication: MALIGNANT NEOPLASM OF AMPULLA OF VATER
     Dosage: TAKE 4 TABLET(S) BY MOUTH TWICE A DAY
     Route: 048
  4. COTELLIC [Suspect]
     Active Substance: COBIMETINIB
     Indication: MALIGNANT NEOPLASM OF AMPULLA OF VATER
     Dosage: TAKE 3 TABLET(S) BY MOUTH EVERY DAY ON DAYS 1-21 EVERY 28 DAY(S)
     Route: 048

REACTIONS (3)
  - Intentional product use issue [Unknown]
  - Death [Fatal]
  - Off label use [Unknown]

NARRATIVE: CASE EVENT DATE: 20200111
